FAERS Safety Report 4348598-6 (Version None)
Quarter: 2004Q2

REPORT INFORMATION
  Report Type: 
  Country: None (occurrence: None)
  Receive Date: 20040423
  Receipt Date: 20040407
  Transmission Date: 20050107
  Serious: Yes (Hospitalization)
  Sender: FDA-Public Use
  Company Number: USA-2004-0012611

PATIENT
  Age: 19 Year
  Sex: Male
  Weight: 67.1 kg

DRUGS (1)
  1. SPECTRACEF [Suspect]
     Indication: PNEUMONIA
     Dosage: 200 MG BID, ORAL
     Route: 048
     Dates: start: 20031226

REACTIONS (4)
  - CONDITION AGGRAVATED [None]
  - DRUG INEFFECTIVE [None]
  - PLEURAL EFFUSION [None]
  - PNEUMONIA [None]
